FAERS Safety Report 6204806-8 (Version None)
Quarter: 2009Q2

REPORT INFORMATION
  Report Type: 
  Country: None (occurrence: None)
  Receive Date: 20090522
  Receipt Date: 20090511
  Transmission Date: 20091009
  Serious: Yes (Other)
  Sender: FDA-Public Use
  Company Number: 2009US000251

PATIENT
  Age: 67 Year
  Sex: Female
  Weight: 75.7 kg

DRUGS (7)
  1. LEXISCAN [Suspect]
     Indication: ELECTROCARDIOGRAM ABNORMAL
     Dosage: 0.4 MG, UID/QD
     Dates: start: 20090126, end: 20090126
  2. XANAX [Concomitant]
  3. TRICOR [Concomitant]
  4. LISINOPRIL HCT (LISINOPRIL) [Concomitant]
  5. ACID REDUCER (RANITIDINE HYDROCHLORIDE) [Concomitant]
  6. SYNTHROID [Concomitant]
  7. NAPROXEN SODIUM [Concomitant]

REACTIONS (6)
  - BLOOD PRESSURE INCREASED [None]
  - DYSPNOEA [None]
  - FATIGUE [None]
  - MUSCULAR WEAKNESS [None]
  - PAIN IN EXTREMITY [None]
  - VOMITING [None]
